FAERS Safety Report 9097229 (Version 3)
Quarter: 2013Q1

REPORT INFORMATION
  Report Type: Spontaneous
  Country: JP (occurrence: JP)
  Receive Date: 20130212
  Receipt Date: 20130301
  Transmission Date: 20140127
  Serious: Yes (Hospitalization, Other)
  Sender: FDA-Public Use
  Company Number: JP-PFIZER INC-2013056850

PATIENT
  Age: 76 Year
  Sex: Male

DRUGS (5)
  1. LYRICA [Suspect]
     Dosage: 50 MG/DAY
     Route: 048
     Dates: start: 20130104, end: 20130124
  2. LYRICA [Suspect]
     Dosage: 150 MG, UNK
     Route: 048
     Dates: start: 20130125
  3. LOXONIN [Concomitant]
     Indication: BACK PAIN
     Dosage: 2 TABLETS AT MORNING AND AT EVENING
     Route: 048
  4. LOXONIN [Concomitant]
     Dosage: UNK
     Route: 048
  5. VOLTAREN [Concomitant]
     Dosage: UNK

REACTIONS (4)
  - Cardiac disorder [Unknown]
  - Malaise [Unknown]
  - Decreased appetite [Unknown]
  - Oedema peripheral [Unknown]
